FAERS Safety Report 16333711 (Version 2)
Quarter: 2019Q3

REPORT INFORMATION
  Report Type: Spontaneous
  Country: US (occurrence: US)
  Receive Date: 20190520
  Receipt Date: 20190806
  Transmission Date: 20191004
  Serious: Yes (Other)
  Sender: FDA-Public Use
  Company Number: US-TORRENT-00008699

PATIENT
  Age: 66 Year
  Sex: Female
  Weight: 104 kg

DRUGS (1)
  1. LOSARTAN. [Suspect]
     Active Substance: LOSARTAN
     Indication: HYPERTENSION

REACTIONS (3)
  - Hypersensitivity [Unknown]
  - Breast cancer [Unknown]
  - Alopecia [Unknown]
